FAERS Safety Report 8584913-5 (Version None)
Quarter: 2012Q3

REPORT INFORMATION
  Report Type: 
  Country: None (occurrence: None)
  Receive Date: 20120810
  Receipt Date: 20120801
  Transmission Date: 20120928
  Serious: Yes (Hospitalization)
  Sender: FDA-Public Use
  Company Number: JP-JNJFOC-20120802836

PATIENT
  Age: 21 Year
  Sex: Female

DRUGS (3)
  1. CYCLOSPORINE [Concomitant]
     Indication: COLITIS ULCERATIVE
     Route: 065
  2. REMICADE [Suspect]
     Indication: COLITIS ULCERATIVE
     Route: 042
  3. AZATHIOPRINE SODIUM [Concomitant]
     Indication: COLITIS ULCERATIVE
     Route: 048

REACTIONS (1)
  - TAKAYASU'S ARTERITIS [None]
